FAERS Safety Report 8525114-6 (Version None)
Quarter: 2012Q3

REPORT INFORMATION
  Report Type: 
  Country: None (occurrence: None)
  Receive Date: 20120720
  Receipt Date: 20120706
  Transmission Date: 20120928
  Serious: Yes (Other)
  Sender: FDA-Public Use
  Company Number: CZ-MYLANLABS-2012S1014267

PATIENT
  Age: 42 Year
  Sex: Female

DRUGS (8)
  1. DITHIADEN [Suspect]
     Indication: PREMEDICATION
     Dosage: 2MG
     Route: 042
  2. DOCETAXEL [Suspect]
     Indication: BREAST CANCER
     Dosage: FOR 4 CYCLES
     Route: 042
  3. RANITIDINE [Suspect]
     Indication: PREMEDICATION
     Dosage: 150MG
     Route: 042
  4. CYCLOPHOSPHAMIDE [Suspect]
     Indication: BREAST CANCER
     Dosage: ON D1; PART OF ACT PROTOCOL; FOR 4 CYCLES
     Route: 042
  5. PACLITAXEL [Suspect]
     Indication: BREAST CANCER
     Dosage: OVER 1H ON D1; PART OF ACT PROTOCOL; SCHEDULED FOR 12W
     Route: 042
  6. DOXORUBICIN HCL [Suspect]
     Indication: BREAST CANCER
     Dosage: ON D1; PART OF ACT PROTOCOL; FOR 4 CYCLES
     Route: 042
  7. DEXAMETHASONE [Suspect]
     Indication: PREMEDICATION
     Dosage: 12MG
     Route: 042
  8. ONDANSETRON [Suspect]
     Indication: ANTIEMETIC SUPPORTIVE CARE
     Dosage: 8MG
     Route: 042

REACTIONS (4)
  - TRANSIENT PSYCHOSIS [None]
  - FEBRILE NEUTROPENIA [None]
  - HALLUCINATION [None]
  - SUICIDAL IDEATION [None]
